FAERS Safety Report 4440750-4 (Version None)
Quarter: 2004Q3

REPORT INFORMATION
  Report Type: 
  Country: None (occurrence: None)
  Receive Date: 20040728
  Receipt Date: 20040302
  Transmission Date: 20050211
  Serious: No
  Sender: FDA-Public Use
  Company Number: USA031152648

PATIENT
  Age: 12 Year
  Sex: Male
  Weight: 75 kg

DRUGS (3)
  1. STRATTERA [Suspect]
     Indication: ATTENTION DEFICIT/HYPERACTIVITY DISORDER
     Dosage: 100 MG/IN THE MORNING
     Dates: start: 20030801
  2. CONCERTA [Concomitant]
  3. WELLBUTRIN SR [Concomitant]

REACTIONS (5)
  - AGGRESSION [None]
  - ANGER [None]
  - DRUG EFFECT DECREASED [None]
  - SUICIDAL IDEATION [None]
  - WEIGHT DECREASED [None]
